FAERS Safety Report 9671429 (Version 1)
Quarter: 2013Q4

REPORT INFORMATION
  Report Type: Spontaneous
  Country: US (occurrence: None)
  Receive Date: 20131105
  Receipt Date: 20131105
  Transmission Date: 20140711
  Serious: No
  Sender: FDA-Public Use
  Company Number: None

PATIENT
  Age: 33 Year
  Sex: Female

DRUGS (1)
  1. CYMBALTA [Suspect]
     Indication: ANXIETY DISORDER
     Dosage: 1 ONCE DAILY
     Route: 048
     Dates: start: 20131103

REACTIONS (8)
  - Drug withdrawal syndrome [None]
  - Vertigo [None]
  - Fatigue [None]
  - Irritability [None]
  - Activities of daily living impaired [None]
  - Impaired driving ability [None]
  - Mental impairment [None]
  - Paraesthesia [None]
